FAERS Safety Report 7226639-6 (Version None)
Quarter: 2011Q1

REPORT INFORMATION
  Report Type: 
  Country: None (occurrence: None)
  Receive Date: 20110114
  Receipt Date: 20110110
  Transmission Date: 20110831
  Serious: Yes (Other)
  Sender: FDA-Public Use
  Company Number: IT-JNJFOC-20110102876

PATIENT
  Age: 46 Year
  Sex: Male

DRUGS (3)
  1. RISPERDAL [Suspect]
     Indication: ILL-DEFINED DISORDER
     Route: 048
  2. DEPAKENE [Suspect]
     Indication: ILL-DEFINED DISORDER
     Route: 048
  3. SERTRALINE [Suspect]
     Indication: ILL-DEFINED DISORDER
     Route: 065

REACTIONS (2)
  - SELF INJURIOUS BEHAVIOUR [None]
  - SOPOR [None]
